FAERS Safety Report 25950276 (Version 1)
Quarter: 2025Q4

REPORT INFORMATION
  Report Type: Spontaneous
  Country: US (occurrence: US)
  Receive Date: 20251022
  Receipt Date: 20251022
  Transmission Date: 20260118
  Serious: No
  Sender: ABBVIE
  Company Number: US-ABBVIE-6513606

PATIENT
  Sex: Female

DRUGS (1)
  1. TELISOTUZUMAB VEDOTIN [Suspect]
     Active Substance: TELISOTUZUMAB VEDOTIN
     Indication: Non-small cell lung cancer
     Dosage: UNKNOWN
     Route: 042

REACTIONS (3)
  - Keratitis [Not Recovered/Not Resolved]
  - Ocular toxicity [Not Recovered/Not Resolved]
  - Vision blurred [Not Recovered/Not Resolved]
